FAERS Safety Report 7052296-8 (Version None)
Quarter: 2010Q4

REPORT INFORMATION
  Report Type: 
  Country: None (occurrence: None)
  Receive Date: 20101019
  Receipt Date: 20101008
  Transmission Date: 20110411
  Serious: Yes (Hospitalization)
  Sender: FDA-Public Use
  Company Number: US-ELI_LILLY_AND_COMPANY-US201010004016

PATIENT
  Sex: Male

DRUGS (5)
  1. HUMALOG [Suspect]
     Indication: TYPE 2 DIABETES MELLITUS
     Route: 058
  2. HUMALOG [Suspect]
     Route: 058
  3. HUMULIN 70/30 [Suspect]
     Indication: TYPE 2 DIABETES MELLITUS
  4. HUMALOG MIX 75/25 [Suspect]
     Indication: TYPE 2 DIABETES MELLITUS
  5. LANTUS [Concomitant]
     Indication: TYPE 2 DIABETES MELLITUS

REACTIONS (9)
  - BLOOD GLUCOSE DECREASED [None]
  - BLOOD GLUCOSE INCREASED [None]
  - DIABETES MELLITUS INADEQUATE CONTROL [None]
  - DRUG DOSE OMISSION [None]
  - DRUG INEFFECTIVE [None]
  - FEELING ABNORMAL [None]
  - INADEQUATE DIET [None]
  - INSULIN RESISTANCE [None]
  - NEUROPATHY PERIPHERAL [None]
